FAERS Safety Report 22620869 (Version 1)
Quarter: 2023Q2

REPORT INFORMATION
  Report Type: Spontaneous
  Country: JP (occurrence: None)
  Receive Date: 20230620
  Receipt Date: 20230620
  Transmission Date: 20230722
  Serious: Yes (Hospitalization)
  Sender: FDA-Public Use
  Company Number: 2023A134190

PATIENT
  Age: 85 Year
  Sex: Male
  Weight: 62 kg

DRUGS (11)
  1. DAPAGLIFLOZIN [Suspect]
     Active Substance: DAPAGLIFLOZIN
     Indication: Cardiac failure chronic
     Route: 048
     Dates: start: 20230525, end: 20230528
  2. PERINDOPRIL [Suspect]
     Active Substance: PERINDOPRIL
     Indication: Acute myocardial infarction
     Route: 048
     Dates: start: 20230526, end: 20230528
  3. ASPIRIN [Concomitant]
     Active Substance: ASPIRIN
     Dosage: 1.0DF UNKNOWN
     Route: 048
  4. LANSOPRAZOLE [Concomitant]
     Active Substance: LANSOPRAZOLE
     Dosage: AFTER BREAKFAST, BROUGHT BEFORE THE ADMISSION
     Route: 048
  5. CLOPIDOGREL BISULFATE [Concomitant]
     Active Substance: CLOPIDOGREL BISULFATE
     Dosage: 75.0MG UNKNOWN
     Route: 048
  6. PITAVASTATIN CALCIUM [Concomitant]
     Active Substance: PITAVASTATIN CALCIUM
     Dosage: 2.0MG UNKNOWN
     Route: 048
  7. BISOPROLOL FUMARATE [Concomitant]
     Active Substance: BISOPROLOL FUMARATE
     Dosage: AFTER BREAKFAST, TAKEN BEFORE THE ADMISSION
     Route: 048
  8. EDOXABAN TOSYLATE [Concomitant]
     Active Substance: EDOXABAN TOSYLATE
     Dosage: AFTER BREAKFAST, TAKEN BEFORE THE ADMISSION
     Route: 048
  9. TAMSULOSIN HYDROCHLORIDE [Concomitant]
     Active Substance: TAMSULOSIN HYDROCHLORIDE
     Dosage: AFTER BREAKFAST, TAKEN BEFORE THE ADMISSION
     Route: 048
  10. EPLERENONE [Concomitant]
     Active Substance: EPLERENONE
     Dosage: AFTER BREAKFAST, TAKEN BEFORE THE ADMISSION
     Route: 048
     Dates: start: 20230524
  11. AMLODIPINE BESYLATE\CANDESARTAN CILEXETIL [Concomitant]
     Active Substance: AMLODIPINE BESYLATE\CANDESARTAN CILEXETIL
     Dosage: AFTER BREAKFAST, BROUGHT BEFORE THE ADMISSION
     Route: 048

REACTIONS (3)
  - Hospitalisation [Unknown]
  - Erythema [Recovering/Resolving]
  - Urticaria [Unknown]

NARRATIVE: CASE EVENT DATE: 20230526
